FAERS Safety Report 5249484-X (Version None)
Quarter: 2007Q1

REPORT INFORMATION
  Report Type: 
  Country: None (occurrence: None)
  Receive Date: 20070228
  Receipt Date: 20061204
  Transmission Date: 20070707
  Serious: No
  Sender: FDA-Public Use
  Company Number: US-GLAXOSMITHKLINE-A0630113A

PATIENT
  Sex: Female

DRUGS (2)
  1. VALTREX [Suspect]
     Indication: HERPES VIRUS INFECTION
  2. WART MEDICATION [Concomitant]

REACTIONS (3)
  - HERPES VIRUS INFECTION [None]
  - LICE INFESTATION [None]
  - SKIN PAPILLOMA [None]
